FAERS Safety Report 10645317 (Version 5)
Quarter: 2015Q1

REPORT INFORMATION
  Report Type: Report from Study
  Country: CA (occurrence: CA)
  Receive Date: 20141211
  Receipt Date: 20150317
  Transmission Date: 20150720
  Serious: Yes (Hospitalization, Other)
  Sender: FDA-Public Use
  Company Number: PHHY2011CA108771

PATIENT
  Age: 72 Year
  Sex: Female

DRUGS (1)
  1. SANDOSTATIN LAR DEPOT [Suspect]
     Active Substance: OCTREOTIDE ACETATE
     Indication: NEUROENDOCRINE TUMOUR
     Dosage: 40 MG, EVERY 4 WEEKS
     Route: 030
     Dates: start: 20111101

REACTIONS (20)
  - Malaise [Unknown]
  - Renal pain [Unknown]
  - Diarrhoea [Unknown]
  - Abdominal distension [Unknown]
  - Pneumonia [Unknown]
  - Blood pressure systolic increased [Unknown]
  - Asthenia [Unknown]
  - Glossodynia [Unknown]
  - Cough [Unknown]
  - Rhinorrhoea [Unknown]
  - Clostridium difficile infection [Unknown]
  - Feeling abnormal [Unknown]
  - Heart rate decreased [Unknown]
  - Oropharyngeal pain [Unknown]
  - Urinary tract infection [Recovering/Resolving]
  - Dyspnoea [Unknown]
  - Incoherent [Unknown]
  - Blood pressure increased [Unknown]
  - Adverse drug reaction [Unknown]
  - Oral pain [Unknown]

NARRATIVE: CASE EVENT DATE: 20130629
